FAERS Safety Report 4850202-5 (Version None)
Quarter: 2005Q4

REPORT INFORMATION
  Report Type: 
  Country: None (occurrence: None)
  Receive Date: 20051123
  Receipt Date: 20050817
  Transmission Date: 20060501
  Serious: Yes (Hospitalization, Other)
  Sender: FDA-Public Use
  Company Number: 2005104376

PATIENT
  Age: 59 Year
  Sex: Male

DRUGS (9)
  1. LIPITOR [Suspect]
     Indication: HYPERLIPIDAEMIA
     Dosage: 10 MG (10 MG, 1 IN 1 D)
     Dates: start: 20050415, end: 20050523
  2. FEOSOL (FERROUS SULFATE) [Concomitant]
  3. BUSPAR [Concomitant]
  4. REMERON [Concomitant]
  5. . [Concomitant]
  6. ZYPREXA [Concomitant]
  7. ALLEGRA [Concomitant]
  8. LACTIC ACID [Concomitant]
  9. LOPROX (CICLOPIROX OLAMINE) [Concomitant]

REACTIONS (4)
  - ABDOMINAL PAIN [None]
  - DIARRHOEA [None]
  - RHABDOMYOLYSIS [None]
  - VOMITING [None]
